FAERS Safety Report 8229877-9 (Version None)
Quarter: 2012Q1

REPORT INFORMATION
  Report Type: 
  Country: None (occurrence: None)
  Receive Date: 20120323
  Receipt Date: 20120314
  Transmission Date: 20120608
  Serious: Yes (Hospitalization, Other)
  Sender: FDA-Public Use
  Company Number: DE-BIOGENIDEC-2012BI004892

PATIENT
  Age: 39 Year
  Sex: Female

DRUGS (6)
  1. MYDOCALM [Concomitant]
     Indication: MUSCLE SPASTICITY
     Dates: start: 20080101
  2. TYSABRI [Suspect]
     Indication: RELAPSING-REMITTING MULTIPLE SCLEROSIS
     Route: 042
     Dates: start: 20110824
  3. LYRICA [Concomitant]
     Indication: PARAESTHESIA
     Dates: start: 20050518
  4. CITALOPRAM HYDROBROMIDE [Concomitant]
     Indication: AFFECTIVE DISORDER
     Dates: start: 20101128
  5. LEVOTHYROXINE SODIUM [Concomitant]
     Indication: BASEDOW'S DISEASE
     Dates: start: 20050101
  6. VIGIL [Concomitant]
     Indication: FATIGUE
     Dates: start: 20111025

REACTIONS (1)
  - FIBROADENOMA OF BREAST [None]
